FAERS Safety Report 7096566-6 (Version None)
Quarter: 2010Q4

REPORT INFORMATION
  Report Type: 
  Country: None (occurrence: None)
  Receive Date: 20101111
  Receipt Date: 20101104
  Transmission Date: 20110411
  Serious: Yes (Hospitalization)
  Sender: FDA-Public Use
  Company Number: B0681694A

PATIENT
  Age: 53 Year
  Sex: Male

DRUGS (7)
  1. TRIZIVIR [Suspect]
     Indication: HIV INFECTION
     Dosage: 1TAB TWICE PER DAY
     Route: 048
     Dates: start: 20010725
  2. PANDEMRIX H1N1 [Suspect]
     Indication: PROPHYLAXIS
     Route: 065
     Dates: start: 20090101, end: 20090101
  3. ENGERIX-B [Suspect]
     Indication: PROPHYLAXIS
     Route: 030
     Dates: start: 20091218, end: 20091218
  4. PNEUMO 23 [Suspect]
     Indication: PROPHYLAXIS
     Route: 065
     Dates: start: 20090928, end: 20090928
  5. VAXIGRIP [Suspect]
     Indication: PROPHYLAXIS
     Route: 065
     Dates: start: 20090928, end: 20090928
  6. GENHEVAC B [Suspect]
     Indication: PROPHYLAXIS
     Route: 030
     Dates: start: 20090629, end: 20090629
  7. ENGERIX-B [Concomitant]
     Route: 030
     Dates: start: 20090721, end: 20090721

REACTIONS (8)
  - ARTHRALGIA [None]
  - DYSAESTHESIA [None]
  - INJECTION SITE PAIN [None]
  - NEUROPATHY PERIPHERAL [None]
  - OSTEOARTHRITIS [None]
  - PARAESTHESIA [None]
  - PARALYSIS [None]
  - ROTATOR CUFF SYNDROME [None]
